FAERS Safety Report 9434361 (Version 1)
Quarter: 2013Q3

REPORT INFORMATION
  Report Type: Spontaneous
  Country: US (occurrence: None)
  Receive Date: 20130731
  Receipt Date: 20130731
  Transmission Date: 20140515
  Serious: No
  Sender: FDA-Public Use
  Company Number: None

PATIENT
  Age: 55 None
  Sex: Male

DRUGS (7)
  1. XARELTO [Suspect]
     Indication: KNEE ARTHROPLASTY
     Dosage: 1 TAB MORNING 1 X MOUTH
     Route: 048
     Dates: start: 20130702, end: 20130709
  2. XARELTO [Suspect]
     Indication: THROMBOSIS PROPHYLAXIS
     Dosage: 1 TAB MORNING 1 X MOUTH
     Route: 048
     Dates: start: 20130702, end: 20130709
  3. METOPROLOL [Concomitant]
  4. BENAZEPRIL [Concomitant]
  5. XARELTO [Concomitant]
  6. PROMETHAZINE [Concomitant]
  7. OXYCODONE [Concomitant]

REACTIONS (6)
  - Pyrexia [None]
  - Decreased appetite [None]
  - Asthenia [None]
  - Pallor [None]
  - Faeces discoloured [None]
  - Hyperhidrosis [None]
